FAERS Safety Report 21337972 (Version 1)
Quarter: 2022Q3

REPORT INFORMATION
  Report Type: Spontaneous
  Country: US (occurrence: None)
  Receive Date: 20220915
  Receipt Date: 20220915
  Transmission Date: 20221027
  Serious: Yes (Other)
  Sender: FDA-Public Use
  Company Number: None

PATIENT
  Age: 73 Year
  Sex: Female
  Weight: 53.1 kg

DRUGS (8)
  1. PACLITAXEL [Suspect]
     Active Substance: PACLITAXEL
     Indication: Lung carcinoma cell type unspecified stage 0
     Dosage: OTHER FREQUENCY : WEEKLY;?
     Route: 041
     Dates: start: 20220914, end: 20220914
  2. ALOXI [Concomitant]
     Active Substance: PALONOSETRON HYDROCHLORIDE
     Dates: start: 20220914, end: 20220914
  3. DEXAMETHASONE [Concomitant]
     Active Substance: DEXAMETHASONE
     Dates: start: 20220914, end: 20220914
  4. DEXAMETHASONE [Concomitant]
     Active Substance: DEXAMETHASONE
     Dates: start: 20220914, end: 20220914
  5. FAMOTIDINE [Concomitant]
     Active Substance: FAMOTIDINE
     Dates: start: 20220914, end: 20220914
  6. CARBOPLATIN [Concomitant]
     Active Substance: CARBOPLATIN
     Dates: start: 20220914, end: 20220914
  7. DIPHENHYDRAMINE [Concomitant]
     Active Substance: DIPHENHYDRAMINE
     Dates: start: 20220914, end: 20220914
  8. SOLU-MEDROL [Concomitant]
     Active Substance: METHYLPREDNISOLONE SODIUM SUCCINATE
     Dates: start: 20220914, end: 20220914

REACTIONS (7)
  - Infusion related reaction [None]
  - Dizziness [None]
  - Flushing [None]
  - Feeling abnormal [None]
  - Dyspnoea [None]
  - Back pain [None]
  - Hypertension [None]

NARRATIVE: CASE EVENT DATE: 20220914
